FAERS Safety Report 18770340 (Version 1)
Quarter: 2021Q1

REPORT INFORMATION
  Report Type: Other
  Country: CA (occurrence: CA)
  Receive Date: 20210122
  Receipt Date: 20210122
  Transmission Date: 20210419
  Serious: Yes (Death, Life-Threatening, Other)
  Sender: FDA-Public Use
  Company Number: CA-CELLTRION INC.-2021CA000626

PATIENT

DRUGS (62)
  1. CYTARABINE. [Suspect]
     Active Substance: CYTARABINE
     Indication: BURKITT^S LEUKAEMIA
  2. METHOTREXATE. [Suspect]
     Active Substance: METHOTREXATE
     Indication: BURKITT^S LYMPHOMA STAGE IV
  3. PROCYTOX [Suspect]
     Active Substance: CYCLOPHOSPHAMIDE
     Indication: BURKITT^S LEUKAEMIA
  4. DAUNORUBICIN HYDROCHLORIDE. [Suspect]
     Active Substance: DAUNORUBICIN HYDROCHLORIDE
     Indication: MYELODYSPLASTIC SYNDROME
     Dosage: UNK
     Route: 065
  5. ETOPOSIDE. [Suspect]
     Active Substance: ETOPOSIDE
     Indication: BURKITT^S LYMPHOMA STAGE IV
     Dosage: UNK
     Route: 065
  6. FOLINIC ACID [Suspect]
     Active Substance: LEUCOVORIN
     Indication: BURKITT^S LYMPHOMA
     Dosage: UNK, CYCLIC
     Route: 065
  7. IFEX [Suspect]
     Active Substance: IFOSFAMIDE
     Indication: BURKITT^S LYMPHOMA
     Route: 065
  8. METHOTREXATE. [Suspect]
     Active Substance: METHOTREXATE
     Indication: BURKITT^S LYMPHOMA
     Dosage: UNK, CYCLIC
     Route: 065
  9. METHOTREXATE. [Suspect]
     Active Substance: METHOTREXATE
     Indication: BURKITT^S LYMPHOMA STAGE IV
  10. CALCIUM FOLINATE [Suspect]
     Active Substance: LEUCOVORIN CALCIUM
     Indication: BURKITT^S LYMPHOMA STAGE IV
     Dosage: UNK, CYCLIC
     Route: 065
  11. CYTARABINE. [Suspect]
     Active Substance: CYTARABINE
     Indication: MYELODYSPLASTIC SYNDROME
     Dosage: UNK
     Route: 065
  12. CYTARABINE. [Suspect]
     Active Substance: CYTARABINE
     Indication: BURKITT^S LYMPHOMA
     Dosage: UNK
     Route: 065
  13. CYTARABINE. [Suspect]
     Active Substance: CYTARABINE
     Indication: BURKITT^S LYMPHOMA STAGE IV
  14. DAUNORUBICIN HYDROCHLORIDE. [Suspect]
     Active Substance: DAUNORUBICIN HYDROCHLORIDE
     Dosage: UNK
     Route: 065
  15. DOXORUBICIN HYDROCHLORIDE. [Suspect]
     Active Substance: DOXORUBICIN HYDROCHLORIDE
     Indication: BURKITT^S LYMPHOMA STAGE IV
     Dosage: UNK
     Route: 065
  16. ETOPOSIDE. [Suspect]
     Active Substance: ETOPOSIDE
     Indication: BURKITT^S LYMPHOMA
  17. LEUCOVORIN. [Suspect]
     Active Substance: LEUCOVORIN
     Indication: BURKITT^S LYMPHOMA STAGE IV
  18. VINCRISTINE [Suspect]
     Active Substance: VINCRISTINE
     Indication: BURKITT^S LEUKAEMIA
  19. DOXORUBICIN HYDROCHLORIDE. [Suspect]
     Active Substance: DOXORUBICIN HYDROCHLORIDE
     Indication: BURKITT^S LEUKAEMIA
  20. DOXORUBICIN HYDROCHLORIDE. [Suspect]
     Active Substance: DOXORUBICIN HYDROCHLORIDE
     Indication: BURKITT^S LYMPHOMA STAGE IV
     Route: 065
  21. IFEX [Suspect]
     Active Substance: IFOSFAMIDE
     Indication: BURKITT^S LEUKAEMIA
  22. LEUCOVORIN. [Suspect]
     Active Substance: LEUCOVORIN
     Indication: BURKITT^S LYMPHOMA
     Dosage: UNK
     Route: 065
  23. PROCYTOX [Suspect]
     Active Substance: CYCLOPHOSPHAMIDE
     Indication: BURKITT^S LYMPHOMA STAGE IV
  24. PROCYTOX [Suspect]
     Active Substance: CYCLOPHOSPHAMIDE
     Indication: BURKITT^S LYMPHOMA STAGE IV
  25. PROCYTOX [Suspect]
     Active Substance: CYCLOPHOSPHAMIDE
     Indication: BURKITT^S LEUKAEMIA
  26. VINCRISTINE SULFATE. [Suspect]
     Active Substance: VINCRISTINE SULFATE
     Indication: BURKITT^S LYMPHOMA STAGE IV
     Route: 065
  27. RITUXIMAB (UNKNOWN) [Suspect]
     Active Substance: RITUXIMAB
     Dosage: UNK, CYCLIC
     Route: 065
  28. CYTARABINE. [Suspect]
     Active Substance: CYTARABINE
     Indication: MYELODYSPLASTIC SYNDROME
     Dosage: UNK
     Route: 065
  29. CYTARABINE. [Suspect]
     Active Substance: CYTARABINE
     Indication: BURKITT^S LEUKAEMIA
  30. DOXORUBICIN HYDROCHLORIDE. [Suspect]
     Active Substance: DOXORUBICIN HYDROCHLORIDE
     Indication: BURKITT^S LEUKAEMIA
  31. ETOPOSIDE. [Suspect]
     Active Substance: ETOPOSIDE
     Indication: BURKITT^S LEUKAEMIA
     Dosage: UNK
     Route: 065
  32. ETOPOSIDE. [Suspect]
     Active Substance: ETOPOSIDE
     Indication: BURKITT^S LYMPHOMA
  33. IDARUBICIN [Suspect]
     Active Substance: IDARUBICIN
     Dosage: UNK
     Route: 065
  34. IFEX [Suspect]
     Active Substance: IFOSFAMIDE
     Indication: BURKITT^S LYMPHOMA STAGE IV
  35. IFEX [Suspect]
     Active Substance: IFOSFAMIDE
     Indication: BURKITT^S LEUKAEMIA
  36. IFEX [Suspect]
     Active Substance: IFOSFAMIDE
     Indication: BURKITT^S LYMPHOMA STAGE IV
  37. IFEX [Suspect]
     Active Substance: IFOSFAMIDE
     Indication: BURKITT^S LEUKAEMIA
  38. LEUCOVORIN. [Suspect]
     Active Substance: LEUCOVORIN
     Indication: BURKITT^S LYMPHOMA
     Dosage: UNK
     Route: 065
  39. METHOTREXATE. [Suspect]
     Active Substance: METHOTREXATE
     Indication: BURKITT^S LEUKAEMIA
  40. PROCYTOX [Suspect]
     Active Substance: CYCLOPHOSPHAMIDE
     Indication: BURKITT^S LEUKAEMIA
  41. RITUXIMAB (UNKNOWN) [Suspect]
     Active Substance: RITUXIMAB
     Indication: BURKITT^S LYMPHOMA STAGE IV
     Dosage: UNK
     Route: 065
  42. CYTARABINE. [Suspect]
     Active Substance: CYTARABINE
     Indication: BURKITT^S LYMPHOMA
  43. IFEX [Suspect]
     Active Substance: IFOSFAMIDE
     Indication: BURKITT^S LYMPHOMA
     Route: 065
  44. IFEX [Suspect]
     Active Substance: IFOSFAMIDE
     Indication: BURKITT^S LYMPHOMA STAGE IV
  45. LEUCOVORIN. [Suspect]
     Active Substance: LEUCOVORIN
     Indication: BURKITT^S LYMPHOMA STAGE IV
  46. PROCYTOX [Suspect]
     Active Substance: CYCLOPHOSPHAMIDE
     Indication: BURKITT^S LYMPHOMA
     Dosage: UNK, CYCLIC
     Route: 065
  47. RITUXIMAB (UNKNOWN) [Suspect]
     Active Substance: RITUXIMAB
     Indication: BURKITT^S LYMPHOMA
     Dosage: UNK
     Route: 065
  48. FLUDARABINE PHOSPHATE. [Suspect]
     Active Substance: FLUDARABINE PHOSPHATE
     Dosage: UNK
     Route: 065
  49. IDARUBICIN [Suspect]
     Active Substance: IDARUBICIN
     Indication: MYELODYSPLASTIC SYNDROME
     Dosage: UNK
     Route: 065
  50. METHOTREXATE. [Suspect]
     Active Substance: METHOTREXATE
     Indication: BURKITT^S LEUKAEMIA
  51. PROCYTOX [Suspect]
     Active Substance: CYCLOPHOSPHAMIDE
     Indication: BURKITT^S LYMPHOMA
     Route: 065
  52. CYTARABINE. [Suspect]
     Active Substance: CYTARABINE
     Indication: BURKITT^S LYMPHOMA STAGE IV
     Dosage: UNK, CYCLIC
     Route: 065
  53. DOXORUBICIN [Suspect]
     Active Substance: DOXORUBICIN
     Indication: BURKITT^S LYMPHOMA
     Dosage: UNK, CYCLIC
     Route: 065
  54. ETOPOSIDE. [Suspect]
     Active Substance: ETOPOSIDE
     Indication: BURKITT^S LYMPHOMA STAGE IV
     Dosage: UNK, CYCLIC
     Route: 065
  55. ETOPOSIDE. [Suspect]
     Active Substance: ETOPOSIDE
     Indication: BURKITT^S LEUKAEMIA
  56. FLUDARABINE PHOSPHATE. [Suspect]
     Active Substance: FLUDARABINE PHOSPHATE
     Indication: MYELODYSPLASTIC SYNDROME
     Dosage: UNK
     Route: 065
  57. IFEX [Suspect]
     Active Substance: IFOSFAMIDE
     Indication: BURKITT^S LYMPHOMA
     Dosage: UNK, CYCLIC
     Route: 065
  58. METHOTREXATE. [Suspect]
     Active Substance: METHOTREXATE
     Indication: BURKITT^S LYMPHOMA
     Dosage: UNK
     Route: 065
  59. PROCYTOX [Suspect]
     Active Substance: CYCLOPHOSPHAMIDE
     Indication: BURKITT^S LYMPHOMA STAGE IV
  60. PROCYTOX [Suspect]
     Active Substance: CYCLOPHOSPHAMIDE
     Indication: BURKITT^S LYMPHOMA
     Dosage: UNK
     Route: 065
  61. VINCRISTINE [Suspect]
     Active Substance: VINCRISTINE
     Indication: BURKITT^S LYMPHOMA
     Dosage: UNK
     Route: 065
  62. VINCRISTINE SULFATE. [Suspect]
     Active Substance: VINCRISTINE SULFATE
     Indication: BURKITT^S LYMPHOMA STAGE IV
     Dosage: UNK, CYCLIC
     Route: 065

REACTIONS (13)
  - Myeloid leukaemia [Fatal]
  - Disease progression [Fatal]
  - Product use in unapproved indication [Fatal]
  - Leukoerythroblastosis [Fatal]
  - Acute myeloid leukaemia [Fatal]
  - Off label use [Fatal]
  - Acquired gene mutation [Fatal]
  - Gene mutation [Fatal]
  - Myelodysplastic syndrome [Fatal]
  - Second primary malignancy [Fatal]
  - Pancytopenia [Fatal]
  - Drug ineffective [Fatal]
  - Dysplasia [Fatal]
